FAERS Safety Report 7544133-X (Version None)
Quarter: 2011Q2

REPORT INFORMATION
  Report Type: 
  Country: None (occurrence: None)
  Receive Date: 20110613
  Receipt Date: 20060328
  Transmission Date: 20111010
  Serious: Yes (Hospitalization)
  Sender: FDA-Public Use
  Company Number: PHFR2006IE01059

PATIENT
  Sex: Female

DRUGS (2)
  1. CLOZAPINE [Suspect]
     Indication: SCHIZOPHRENIA
     Dosage: UNK, UNK
     Route: 048
     Dates: start: 20060206
  2. CLOZAPINE [Suspect]
     Dosage: 25 MG, QD
     Route: 048
     Dates: end: 20060327

REACTIONS (6)
  - FAECALOMA [None]
  - PYREXIA [None]
  - TACHYCARDIA [None]
  - PELVIC INFECTION [None]
  - DEHYDRATION [None]
  - BLOOD PRESSURE INCREASED [None]
